FAERS Safety Report 9193168 (Version 1)
Quarter: 2013Q1

REPORT INFORMATION
  Report Type: Spontaneous
  Country: US (occurrence: US)
  Receive Date: 20130327
  Receipt Date: 20130327
  Transmission Date: 20140127
  Serious: No
  Sender: FDA-Public Use
  Company Number: US-PFIZER INC-2013098599

PATIENT
  Age: 70 Year
  Sex: Female
  Weight: 77.1 kg

DRUGS (7)
  1. XELJANZ [Suspect]
     Indication: RHEUMATOID ARTHRITIS
     Dosage: 5 MG, 2X/DAY
     Dates: start: 201303, end: 20130322
  2. XELJANZ [Suspect]
     Indication: PAIN
  3. XANAX [Suspect]
     Dosage: UNK
  4. PREDNISONE [Suspect]
     Indication: PAIN
     Dosage: 5 MG
  5. PREDNISONE [Suspect]
     Indication: RHEUMATOID ARTHRITIS
  6. HYDROCHLOROTHIAZIDE [Concomitant]
     Indication: BLOOD PRESSURE ABNORMAL
     Dosage: 25 MG, DAILY
  7. NORVASC [Concomitant]
     Indication: BLOOD PRESSURE ABNORMAL
     Dosage: 10 MG, DAILY

REACTIONS (8)
  - Headache [Unknown]
  - Myalgia [Unknown]
  - Pain [Unknown]
  - Pollakiuria [Unknown]
  - Renal pain [Unknown]
  - Arthritis [Not Recovered/Not Resolved]
  - Movement disorder [Unknown]
  - Weight increased [Unknown]
